FAERS Safety Report 6177596-5 (Version None)
Quarter: 2009Q2

REPORT INFORMATION
  Report Type: 
  Country: None (occurrence: None)
  Receive Date: 20090504
  Receipt Date: 20090422
  Transmission Date: 20091009
  Serious: Yes (Other)
  Sender: FDA-Public Use
  Company Number: US-PFIZER INC-2009204802

PATIENT
  Sex: Female
  Weight: 52.608 kg

DRUGS (13)
  1. XANAX [Suspect]
     Indication: PANIC ATTACK
  2. XANAX [Suspect]
     Indication: ANXIETY
  3. XANAX [Suspect]
     Indication: HYPERVENTILATION
  4. NEXIUM [Concomitant]
     Dosage: UNK
  5. BENADRYL [Concomitant]
     Dosage: UNK
  6. CLARINEX [Concomitant]
     Dosage: UNK
  7. NASACORT [Concomitant]
     Dosage: UNK
  8. PARAFON FORTE [Concomitant]
     Dosage: UNK
  9. REGLAN [Concomitant]
     Dosage: UNK
  10. ESTROGENS [Concomitant]
     Dosage: UNK
  11. CONCERTA [Concomitant]
     Dosage: UNK
  12. LITHOBID [Concomitant]
  13. VALIUM [Concomitant]

REACTIONS (6)
  - COGNITIVE DISORDER [None]
  - HYPERVENTILATION [None]
  - LOSS OF CONSCIOUSNESS [None]
  - MENTAL IMPAIRMENT [None]
  - PANIC REACTION [None]
  - SLEEP APNOEA SYNDROME [None]
